FAERS Safety Report 26096275 (Version 2)
Quarter: 2025Q4

REPORT INFORMATION
  Report Type: Report from Study
  Country: CA (occurrence: CA)
  Receive Date: 20251127
  Receipt Date: 20251209
  Transmission Date: 20260117
  Serious: Yes (Other)
  Sender: CELLTRION
  Company Number: CA-CELLTRION INC.-2025CA019215

PATIENT

DRUGS (8)
  1. INFLIXIMAB-DYYB [Suspect]
     Active Substance: INFLIXIMAB-DYYB
     Indication: Colitis ulcerative
     Dosage: MAINTENANCE - 700 MG - IV (INTRAVENOUS) EVERY 4 WEEKS
     Route: 042
     Dates: start: 20250612
  2. INFLIXIMAB-DYYB [Suspect]
     Active Substance: INFLIXIMAB-DYYB
     Dosage: MAINTENANCE - 700 MG  EVERY 4 WEEKS
     Route: 042
     Dates: start: 20250612
  3. INFLIXIMAB-DYYB [Suspect]
     Active Substance: INFLIXIMAB-DYYB
     Dosage: MAINTENANCE - 700 MG EVERY 4 WEEKS
     Route: 042
     Dates: start: 20250612
  4. INFLIXIMAB-DYYB [Suspect]
     Active Substance: INFLIXIMAB-DYYB
     Dosage: MAINTENANCE - 700 MG EVERY 4 WEEKS/  INFUSION OF REMDANTRY IS NOW TO BE GIVEN OVER 2-3  HOURS
     Route: 042
     Dates: start: 20250902
  5. INFLIXIMAB-DYYB [Suspect]
     Active Substance: INFLIXIMAB-DYYB
     Dosage: MAINTENANCE - 700 MG EVERY 4 WEEKS
     Route: 042
     Dates: start: 20251021
  6. ROSUVASTATIN [Concomitant]
     Active Substance: ROSUVASTATIN
     Indication: Product used for unknown indication
     Route: 065
  7. SYNTHROID [Concomitant]
     Active Substance: LEVOTHYROXINE SODIUM
     Indication: Product used for unknown indication
     Route: 065
  8. PREDNISONE [Concomitant]
     Active Substance: PREDNISONE
     Indication: Product used for unknown indication
     Route: 065

REACTIONS (14)
  - Phantosmia [Not Recovered/Not Resolved]
  - Pneumonia [Recovered/Resolved]
  - Headache [Not Recovered/Not Resolved]
  - Intentional dose omission [Not Recovered/Not Resolved]
  - Brain fog [Recovering/Resolving]
  - Muscle spasms [Recovering/Resolving]
  - Pollakiuria [Recovering/Resolving]
  - Renal cyst [Recovering/Resolving]
  - Thirst [Recovering/Resolving]
  - Dizziness [Recovering/Resolving]
  - Pain [Recovered/Resolved]
  - Nausea [Recovered/Resolved]
  - Off label use [Unknown]
  - Inappropriate schedule of product administration [Unknown]

NARRATIVE: CASE EVENT DATE: 20250101
